FAERS Safety Report 7570457-6 (Version None)
Quarter: 2011Q2

REPORT INFORMATION
  Report Type: 
  Country: None (occurrence: None)
  Receive Date: 20110624
  Receipt Date: 20110302
  Transmission Date: 20111010
  Serious: No
  Sender: FDA-Public Use
  Company Number: US-ALLERGAN-1102994US

PATIENT
  Sex: Female

DRUGS (1)
  1. LATISSE [Suspect]
     Indication: GROWTH OF EYELASHES
     Dosage: 1 GTT, QHS
     Route: 047

REACTIONS (6)
  - SKIN IRRITATION [None]
  - NASAL CONGESTION [None]
  - OROPHARYNGEAL PAIN [None]
  - SNEEZING [None]
  - THERAPEUTIC RESPONSE DECREASED [None]
  - HEADACHE [None]
